FAERS Safety Report 21638859 (Version 4)
Quarter: 2023Q1

REPORT INFORMATION
  Report Type: Report from Study
  Country: US (occurrence: US)
  Receive Date: 20221124
  Receipt Date: 20230316
  Transmission Date: 20230417
  Serious: Yes (Other)
  Sender: FDA-Public Use
  Company Number: US-002147023-NVSC2022US263644

PATIENT
  Sex: Female

DRUGS (3)
  1. ENTRESTO [Suspect]
     Active Substance: SACUBITRIL\VALSARTAN
     Indication: Ejection fraction decreased
     Dosage: 1 DOSAGE FORM, BID
     Route: 048
  2. ENTRESTO [Suspect]
     Active Substance: SACUBITRIL\VALSARTAN
     Dosage: 1 DOSAGE FORM, BID(24/26 MG)
     Route: 048
     Dates: start: 202210
  3. ENTRESTO [Suspect]
     Active Substance: SACUBITRIL\VALSARTAN
     Dosage: 1 DOSAGE FORM, BID(24/26 MG)
     Route: 048
     Dates: start: 2022

REACTIONS (7)
  - Pulmonary congestion [Recovering/Resolving]
  - Lower respiratory tract infection [Recovering/Resolving]
  - Wheezing [Recovering/Resolving]
  - Decreased activity [Unknown]
  - Cough [Unknown]
  - Asthenia [Unknown]
  - Vision blurred [Unknown]
